FAERS Safety Report 7179234-1 (Version None)
Quarter: 2010Q4

REPORT INFORMATION
  Report Type: 
  Country: None (occurrence: None)
  Receive Date: 20101208
  Receipt Date: 20101124
  Transmission Date: 20110411
  Serious: Yes (Other)
  Sender: FDA-Public Use
  Company Number: APP201000969

PATIENT
  Sex: Male

DRUGS (6)
  1. HEPARIN SODIUM INJECTION [Suspect]
     Indication: PRODUCT USED FOR UNKNOWN INDICATION
     Dosage: INTRAVENOUS
     Route: 042
     Dates: start: 20101103, end: 20101103
  2. HEPARIN SODIUM INJECTION [Suspect]
  3. STERILE WATER FOR INJECTION, USP (STERILE WATER) [Suspect]
     Indication: PARENTERAL NUTRITION
     Dosage: INTRAVENOUS
     Route: 042
     Dates: start: 20101103, end: 20101103
  4. TPN [Suspect]
     Indication: PRODUCT USED FOR UNKNOWN INDICATION
     Dosage: INTRAVENOUS
     Route: 042
     Dates: start: 20101103, end: 20101103
  5. EPOGEN [Concomitant]
  6. IRON (IRON) [Concomitant]

REACTIONS (3)
  - MENINGITIS [None]
  - OXYGEN SATURATION DECREASED [None]
  - RESPIRATORY DISTRESS [None]
